FAERS Safety Report 4287135-1 (Version None)
Quarter: 2004Q1

REPORT INFORMATION
  Report Type: 
  Country: None (occurrence: None)
  Receive Date: 20040204
  Receipt Date: 20040126
  Transmission Date: 20041129
  Serious: Yes (Hospitalization)
  Sender: FDA-Public Use
  Company Number: 2004-01-0741

PATIENT
  Age: 59 Year
  Sex: Male

DRUGS (6)
  1. VIRAFERONPEG [Suspect]
     Indication: HEPATITIS C
     Dosage: 60 UG QW SUBCUTANEOUS
     Route: 058
     Dates: start: 20021218
  2. REBETOL [Suspect]
     Indication: HEPATITIS
     Dosage: 600 MG QD ORAL
     Route: 048
     Dates: start: 20021218, end: 20030429
  3. VIDEX [Suspect]
     Indication: HIV INFECTION
     Dosage: ORAL
     Route: 048
     Dates: start: 20021206, end: 20030408
  4. VIREAD [Suspect]
     Indication: HIV INFECTION
     Dosage: ORAL
     Route: 048
     Dates: start: 20021206, end: 20030408
  5. ZERIT [Concomitant]
  6. EPIVIR [Concomitant]

REACTIONS (5)
  - ABDOMINAL PAIN [None]
  - BLOOD AMYLASE INCREASED [None]
  - BLOOD CREATININE INCREASED [None]
  - LIPASE INCREASED [None]
  - PANCREATITIS [None]
